FAERS Safety Report 5783099-X (Version None)
Quarter: 2008Q2

REPORT INFORMATION
  Report Type: 
  Country: None (occurrence: None)
  Receive Date: 20080619
  Receipt Date: 20080603
  Transmission Date: 20081010
  Serious: Yes (Life-Threatening, Hospitalization)
  Sender: FDA-Public Use
  Company Number: 2008EU000676

PATIENT
  Age: 54 Year
  Sex: Male
  Weight: 73 kg

DRUGS (14)
  1. PROGRAF [Suspect]
     Indication: LIVER TRANSPLANT
     Dosage: 2 MG, BID, ORAL
     Route: 048
     Dates: start: 20080309, end: 20080320
  2. PROGRAF [Suspect]
     Indication: LIVER TRANSPLANT
     Dosage: 2 MG, BID, ORAL
     Route: 048
     Dates: start: 20080325
  3. ENCORTON (PREDNISONE ACETATE) [Concomitant]
  4. PANTOPRAZOLE SODIUM [Concomitant]
  5. URSO FALK [Concomitant]
  6. BETALOC (METOPROLOL TARTRATE) [Concomitant]
  7. HEVIRAN (ACICLOVIR SODIUM) [Concomitant]
  8. CORDARONE [Concomitant]
  9. CELLCEPT [Concomitant]
  10. CALPEROS [Concomitant]
  11. MULTITABS (FERROUS FUMARATE, MINERALS NOS, VITAMIN NOS) [Concomitant]
  12. DEVISOL (CALCIFEDIOL) [Concomitant]
  13. SLOW-MAG (MAGNESIUM CHLORIDE ANHYDROUS) [Concomitant]
  14. CORDARONE [Concomitant]

REACTIONS (8)
  - ABNORMAL BEHAVIOUR [None]
  - ALTERED STATE OF CONSCIOUSNESS [None]
  - CONVULSION [None]
  - GAMMA-GLUTAMYLTRANSFERASE INCREASED [None]
  - LOSS OF CONSCIOUSNESS [None]
  - SPEECH DISORDER [None]
  - TRANSAMINASES INCREASED [None]
  - TREMOR [None]
